FAERS Safety Report 14708187 (Version 3)
Quarter: 2018Q4

REPORT INFORMATION
  Report Type: Spontaneous
  Country: BR (occurrence: BR)
  Receive Date: 20180403
  Receipt Date: 20181005
  Transmission Date: 20190204
  Serious: Yes (Life-Threatening)
  Sender: FDA-Public Use
  Company Number: PHHY2018BR057057

PATIENT
  Age: 53 Year
  Sex: Female
  Weight: 62 kg

DRUGS (1)
  1. ESTALIS [Suspect]
     Active Substance: ESTRADIOL\NORETHINDRONE ACETATE
     Indication: HORMONE REPLACEMENT THERAPY
     Dosage: 1 DF, EVERY THREE DAYS
     Route: 062

REACTIONS (18)
  - Tongue disorder [Recovering/Resolving]
  - Dizziness [Recovering/Resolving]
  - Pruritus [Unknown]
  - Hypoaesthesia oral [Unknown]
  - Application site pain [Unknown]
  - Head discomfort [Recovering/Resolving]
  - Mydriasis [Recovering/Resolving]
  - Wrong technique in product usage process [Unknown]
  - Mouth swelling [Unknown]
  - Malaise [Unknown]
  - Insomnia [Unknown]
  - Depression [Unknown]
  - Hypersensitivity [Recovering/Resolving]
  - Hangover [Recovering/Resolving]
  - Application site pruritus [Unknown]
  - Skin burning sensation [Recovering/Resolving]
  - Throat tightness [Unknown]
  - Nervousness [Unknown]

NARRATIVE: CASE EVENT DATE: 20180315
